FAERS Safety Report 7078677-4 (Version None)
Quarter: 2010Q4

REPORT INFORMATION
  Report Type: 
  Country: None (occurrence: None)
  Receive Date: 20101102
  Receipt Date: 20101021
  Transmission Date: 20110411
  Serious: Yes (Hospitalization)
  Sender: FDA-Public Use
  Company Number: DE-JNJFOC-20101100046

PATIENT
  Sex: Female

DRUGS (2)
  1. PALEXIA RETARD [Suspect]
     Indication: PRODUCT USED FOR UNKNOWN INDICATION
     Route: 048
  2. NORSPAN [Concomitant]
     Dosage: 20 MCG/H

REACTIONS (5)
  - ASTHENIA [None]
  - DIARRHOEA [None]
  - FATIGUE [None]
  - GASTROINTESTINAL INFECTION [None]
  - VOMITING [None]
